FAERS Safety Report 14379007 (Version 2)
Quarter: 2018Q2

REPORT INFORMATION
  Report Type: Spontaneous
  Country: IT (occurrence: IT)
  Receive Date: 20180112
  Receipt Date: 20180406
  Transmission Date: 20180711
  Serious: Yes (Other)
  Sender: FDA-Public Use
  Company Number: IT-AUROBINDO-AUR-APL-2018-001413

PATIENT

DRUGS (2)
  1. LAMIVUDINE 300MG [Suspect]
     Active Substance: LAMIVUDINE
     Indication: HIV INFECTION
     Dosage: 300 MG, QD
     Route: 065
  2. ATAZANAVIR SULFATE W/RITONAVIR [Suspect]
     Active Substance: ATAZANAVIR SULFATE\RITONAVIR
     Indication: HIV INFECTION
     Dosage: 300/100MG ()
     Route: 065

REACTIONS (1)
  - Virologic failure [Unknown]
